FAERS Safety Report 19006547 (Version 1)
Quarter: 2021Q1

REPORT INFORMATION
  Report Type: Spontaneous
  Country: US (occurrence: US)
  Receive Date: 20210312
  Receipt Date: 20210312
  Transmission Date: 20210420
  Serious: Yes (Death)
  Sender: FDA-Public Use
  Company Number: None

PATIENT
  Age: 70 Year
  Sex: Male
  Weight: 71.21 kg

DRUGS (1)
  1. CAPECITABINE 500 MG TABLET, 500 MG [Suspect]
     Active Substance: CAPECITABINE
     Indication: RECTAL CANCER
     Dosage: TAKE 3 TABLETS BY MOUTH TWICE DAILY FOR 2 WEEKS THEN OFF 1 WEEK AS DIRECTED
     Route: 048
     Dates: start: 202102

REACTIONS (2)
  - Mental impairment [None]
  - General physical health deterioration [None]
